FAERS Safety Report 8921977 (Version 1)
Quarter: 2012Q4

REPORT INFORMATION
  Report Type: Spontaneous
  Country: US (occurrence: None)
  Receive Date: 20121116
  Receipt Date: 20121116
  Transmission Date: 20130627
  Serious: Yes (Other)
  Sender: FDA-Public Use
  Company Number: None

PATIENT
  Age: 6 Month
  Sex: Male
  Weight: 8.3 kg

DRUGS (3)
  1. ADVATE [Suspect]
     Indication: HEMOPHILIA A (FACTOR VIII)
     Route: 040
     Dates: start: 20120830, end: 20120902
  2. ADVATE [Suspect]
     Indication: JOINT BLEEDING
     Route: 040
     Dates: start: 20120830, end: 20120902
  3. ADVATE [Suspect]
     Indication: BLEEDING
     Route: 040
     Dates: start: 20120830, end: 20120902

REACTIONS (2)
  - Arthralgia [None]
  - Joint swelling [None]
